FAERS Safety Report 8282937-9 (Version None)
Quarter: 2012Q2

REPORT INFORMATION
  Report Type: 
  Country: None (occurrence: None)
  Receive Date: 20120413
  Receipt Date: 20120330
  Transmission Date: 20120825
  Serious: Yes (Other)
  Sender: FDA-Public Use
  Company Number: US-ROCHE-1050031

PATIENT
  Sex: Male
  Weight: 78 kg

DRUGS (2)
  1. VEMURAFENIB [Suspect]
     Indication: NEOPLASM
     Route: 048
     Dates: start: 20090504
  2. VEMURAFENIB [Suspect]
     Dosage: DOSE REPORTED FOR MOST RECENT CYCLE NO. 38
     Route: 048
     Dates: start: 20120216, end: 20120314

REACTIONS (1)
  - COLON ADENOMA [None]
